FAERS Safety Report 8490413-3 (Version None)
Quarter: 2012Q3

REPORT INFORMATION
  Report Type: 
  Country: None (occurrence: None)
  Receive Date: 20120705
  Receipt Date: 20120627
  Transmission Date: 20120928
  Serious: Yes (Other)
  Sender: FDA-Public Use
  Company Number: CN-JNJFOC-20120614060

PATIENT
  Age: 80 Year
  Sex: Male

DRUGS (1)
  1. IMODIUM [Suspect]
     Indication: DIARRHOEA
     Dosage: 2-4 MG
     Route: 048
     Dates: start: 20110101, end: 20120620

REACTIONS (4)
  - DIARRHOEA [None]
  - PURPURA [None]
  - HAEMATOCHEZIA [None]
  - ANGIOEDEMA [None]
